FAERS Safety Report 21186852 (Version 1)
Quarter: 2022Q3

REPORT INFORMATION
  Report Type: Spontaneous
  Country: US (occurrence: US)
  Receive Date: 20220808
  Receipt Date: 20220808
  Transmission Date: 20221027
  Serious: No
  Sender: FDA-Public Use
  Company Number: US-GSK-US2022AMR114235

PATIENT

DRUGS (3)
  1. TRELEGY ELLIPTA [Suspect]
     Active Substance: FLUTICASONE FUROATE\UMECLIDINIUM BROMIDE\VILANTEROL TRIFENATATE
     Indication: Chronic obstructive pulmonary disease
     Dosage: UNK
     Dates: end: 2022
  2. TRELEGY ELLIPTA [Suspect]
     Active Substance: FLUTICASONE FUROATE\UMECLIDINIUM BROMIDE\VILANTEROL TRIFENATATE
     Indication: Dyspnoea
  3. ADVAIR HFA [Suspect]
     Active Substance: FLUTICASONE PROPIONATE\SALMETEROL XINAFOATE
     Indication: Chronic obstructive pulmonary disease
     Dosage: UNK

REACTIONS (24)
  - Cough [Unknown]
  - Secretion discharge [Unknown]
  - Increased viscosity of upper respiratory secretion [Unknown]
  - Chest discomfort [Unknown]
  - Loss of personal independence in daily activities [Unknown]
  - Dyspnoea exertional [Recovering/Resolving]
  - Paraesthesia [Unknown]
  - Pain [Recovering/Resolving]
  - Depression [Recovered/Resolved]
  - Crying [Recovered/Resolved]
  - Oral pain [Not Recovered/Not Resolved]
  - Glossodynia [Not Recovered/Not Resolved]
  - Facial pain [Not Recovered/Not Resolved]
  - Taste disorder [Unknown]
  - Eructation [Unknown]
  - Dyspepsia [Unknown]
  - Defaecation urgency [Unknown]
  - Diarrhoea [Unknown]
  - Constipation [Unknown]
  - Eye disorder [Unknown]
  - Vision blurred [Unknown]
  - Ill-defined disorder [Unknown]
  - Wrong technique in device usage process [Unknown]
  - Drug ineffective [Unknown]
